FAERS Safety Report 17099819 (Version 3)
Quarter: 2022Q2

REPORT INFORMATION
  Report Type: Other
  Country: US (occurrence: None)
  Receive Date: 20191202
  Receipt Date: 20220622
  Transmission Date: 20220721
  Serious: Yes (Other)
  Sender: FDA-Public Use
  Company Number: US-ROCHE-2482986

PATIENT
  Age: 45 Year
  Sex: Male
  Weight: 79.450 kg

DRUGS (10)
  1. OCREVUS [Suspect]
     Active Substance: OCRELIZUMAB
     Indication: Relapsing-remitting multiple sclerosis
     Dosage: (PRESCRIBED AS 300MG ON DAYS 0 AND 15, THEN 600MG EVERY 6 MONTHS) ?NEXT DATE OF TREATMENT : 04/NOV/2
     Route: 042
     Dates: start: 20191021
  2. HUMALOG [Concomitant]
     Active Substance: INSULIN LISPRO
     Dosage: INSULIN PUMP: BETWEEN 50 AND 60 UNITS PER DAY
  3. FLUOXETINE [Concomitant]
     Active Substance: FLUOXETINE HYDROCHLORIDE
     Indication: Depression
     Dosage: STARTED 15 YEARS AGO
     Route: 048
  4. DALFAMPRIDINE [Concomitant]
     Active Substance: DALFAMPRIDINE
     Indication: Tremor
     Route: 048
  5. TERBINAFINE [Concomitant]
     Active Substance: TERBINAFINE
     Route: 048
  6. BACLOFEN [Concomitant]
     Active Substance: BACLOFEN
     Indication: Tremor
     Route: 048
  7. PRAVASTATIN SODIUM [Concomitant]
     Active Substance: PRAVASTATIN SODIUM
     Indication: Blood cholesterol increased
     Route: 048
  8. INSULIN LISPRO [Concomitant]
     Active Substance: INSULIN LISPRO
     Dosage: SLIDING SCALE
     Route: 058
     Dates: start: 2010
  9. INSULIN GLARGINE [Concomitant]
     Active Substance: INSULIN GLARGINE
     Dosage: 30 UNITS ONCE DAILY
     Route: 058
     Dates: start: 2010
  10. NOVOLOG [Concomitant]
     Active Substance: INSULIN ASPART

REACTIONS (2)
  - Herpes zoster [Recovering/Resolving]
  - COVID-19 [Not Recovered/Not Resolved]

NARRATIVE: CASE EVENT DATE: 20191114
